FAERS Safety Report 12741047 (Version 1)
Quarter: 2016Q3

REPORT INFORMATION
  Report Type: Report from Study
  Country: US (occurrence: US)
  Receive Date: 20160914
  Receipt Date: 20160914
  Transmission Date: 20161109
  Serious: Yes (Life-Threatening, Hospitalization, Other)
  Sender: FDA-Public Use
  Company Number: US-ROCHE-783254

PATIENT
  Age: 79 Year
  Sex: Male
  Weight: 76.7 kg

DRUGS (3)
  1. TEMSIROLIMUS [Suspect]
     Active Substance: TEMSIROLIMUS
     Indication: PANCREATIC NEOPLASM
     Dosage: CYCLE 28 DAYS; ON DAYS 1, 8, 15, 22; PATIENT WAS OFF STUDY SINCE 06 JULY 2010.?LAST TREATMENT RECEIV
     Route: 042
  2. BEVACIZUMAB [Suspect]
     Active Substance: BEVACIZUMAB
     Indication: PANCREATIC NEOPLASM
     Dosage: CYCLE 28 DAYS; OVER 30-90 MINUTES ON DAYS 1 AND 15; PATIENT WAS OFF STUDY SINCE 06 JULY 2010?LAST TR
     Route: 042
     Dates: start: 20100525, end: 20100608
  3. MEGESTROL ACETATE. [Suspect]
     Active Substance: MEGESTROL ACETATE
     Indication: PRODUCT USED FOR UNKNOWN INDICATION
     Route: 065

REACTIONS (8)
  - Pleural effusion [Unknown]
  - Pulmonary haemorrhage [Unknown]
  - Muscular weakness [Unknown]
  - Left ventricular dysfunction [Unknown]
  - Fatigue [Unknown]
  - Hyperglycaemia [Unknown]
  - Dyspnoea [Unknown]
  - Oedema peripheral [Unknown]

NARRATIVE: CASE EVENT DATE: 20100621
